FAERS Safety Report 17301256 (Version 1)
Quarter: 2020Q1

REPORT INFORMATION
  Report Type: Spontaneous
  Country: US (occurrence: US)
  Receive Date: 20200106
  Receipt Date: 20200106
  Transmission Date: 20200409
  Serious: No
  Sender: FDA-Public Use
  Company Number: None

PATIENT
  Age: 62 Year
  Sex: Male

DRUGS (1)
  1. SOFOSBUVIR /VELPATASVIR 400-100 MG [Suspect]
     Active Substance: SOFOSBUVIR\VELPATASVIR
     Dosage: 400-MG
     Route: 048
     Dates: start: 20191114

REACTIONS (2)
  - Abdominal discomfort [None]
  - Headache [None]

NARRATIVE: CASE EVENT DATE: 20200106
